FAERS Safety Report 5940959-4 (Version None)
Quarter: 2008Q4

REPORT INFORMATION
  Report Type: 
  Country: None (occurrence: None)
  Receive Date: 20081104
  Receipt Date: 20081023
  Transmission Date: 20090506
  Serious: Yes (Other)
  Sender: FDA-Public Use
  Company Number: US-ELI_LILLY_AND_COMPANY-US200810002307

PATIENT
  Sex: Female
  Weight: 76.19 kg

DRUGS (7)
  1. BYETTA [Suspect]
     Indication: TYPE 2 DIABETES MELLITUS
     Dosage: 5 UG, 2/D
     Route: 058
     Dates: start: 20080806, end: 20080906
  2. BYETTA [Suspect]
     Dosage: 10 UG, 2/D
     Route: 058
     Dates: start: 20080906, end: 20080918
  3. CRESTOR [Concomitant]
     Indication: LIPIDS INCREASED
     Dosage: 10 MG, UNK
     Route: 048
     Dates: start: 20050720
  4. ATENOLOL [Concomitant]
     Indication: HYPERTENSION
     Dosage: 50 MG, UNK
     Route: 048
     Dates: start: 20040323
  5. TRICOR [Concomitant]
     Indication: LIPIDS INCREASED
     Dosage: 145 MG, UNK
     Route: 048
     Dates: start: 20041220
  6. METFORMIN HCL [Concomitant]
     Indication: DIABETES MELLITUS
     Dosage: 500 MG, 2/D
     Dates: start: 20080424
  7. LEVOTHYROXINE SODIUM [Concomitant]
     Indication: HYPOTHYROIDISM
     Dosage: 25 UG, DAILY (1/D)
     Dates: start: 20080617

REACTIONS (2)
  - PANCREATITIS [None]
  - WEIGHT DECREASED [None]
